FAERS Safety Report 9173265 (Version 4)
Quarter: 2013Q2

REPORT INFORMATION
  Report Type: Spontaneous
  Country: US (occurrence: US)
  Receive Date: 20130320
  Receipt Date: 20130606
  Transmission Date: 20140414
  Serious: Yes (Other)
  Sender: FDA-Public Use
  Company Number: US-JNJFOC-20130304280

PATIENT
  Age: 67 Year
  Sex: Female

DRUGS (19)
  1. XARELTO [Suspect]
     Indication: PRODUCT USED FOR UNKNOWN INDICATION
     Route: 048
     Dates: start: 20130202, end: 20130206
  2. CYMBALTA [Concomitant]
     Indication: NEUROPATHY PERIPHERAL
     Route: 048
  3. CYMBALTA [Concomitant]
     Indication: DEPRESSION
     Route: 048
  4. BUSPAR [Concomitant]
     Indication: FEELING OF RELAXATION
     Dosage: AS PER NEEDED.
     Route: 048
  5. PREVACID [Concomitant]
     Indication: OESOPHAGEAL ULCER
     Route: 048
  6. PREVACID [Concomitant]
     Indication: GASTROOESOPHAGEAL REFLUX DISEASE
     Route: 048
  7. INDERAL [Concomitant]
     Indication: MIGRAINE PROPHYLAXIS
     Route: 048
  8. INDERAL [Concomitant]
     Indication: MIGRAINE PROPHYLAXIS
     Route: 048
     Dates: start: 2011
  9. INDERAL [Concomitant]
     Indication: HEADACHE
     Route: 048
  10. INDERAL [Concomitant]
     Indication: HEADACHE
     Route: 048
     Dates: start: 2011
  11. COENZYME Q [Concomitant]
     Indication: MIGRAINE PROPHYLAXIS
     Route: 048
  12. COENZYME Q [Concomitant]
     Indication: MIGRAINE PROPHYLAXIS
     Route: 048
     Dates: start: 2011
  13. COENZYME Q [Concomitant]
     Indication: HEADACHE
     Route: 048
  14. COENZYME Q [Concomitant]
     Indication: HEADACHE
     Route: 048
     Dates: start: 2011
  15. MAGNESIUM [Concomitant]
     Indication: MIGRAINE PROPHYLAXIS
     Route: 048
     Dates: start: 2011
  16. MAGNESIUM [Concomitant]
     Indication: HEADACHE
     Route: 048
     Dates: start: 2011
  17. RECLAST [Concomitant]
     Indication: OSTEOPOROSIS
     Route: 065
  18. VITAMIN B12 [Concomitant]
     Route: 065
  19. IMITREX [Concomitant]
     Indication: MIGRAINE
     Route: 048

REACTIONS (2)
  - Migraine [Recovered/Resolved]
  - Pruritus generalised [Recovered/Resolved]
